FAERS Safety Report 8397832-4 (Version None)
Quarter: 2012Q2

REPORT INFORMATION
  Report Type: 
  Country: None (occurrence: None)
  Receive Date: 20120531
  Receipt Date: 20120523
  Transmission Date: 20120825
  Serious: Yes (Hospitalization)
  Sender: FDA-Public Use
  Company Number: US-JNJFOC-20120518205

PATIENT
  Sex: Male

DRUGS (2)
  1. STELARA [Suspect]
     Indication: PSORIATIC ARTHROPATHY
     Route: 058
  2. STELARA [Suspect]
     Indication: PSORIASIS
     Route: 058

REACTIONS (4)
  - ADVERSE EVENT [None]
  - KNEE ARTHROPLASTY [None]
  - PSORIATIC ARTHROPATHY [None]
  - POST PROCEDURAL COMPLICATION [None]
